FAERS Safety Report 5062119-4 (Version None)
Quarter: 2006Q3

REPORT INFORMATION
  Report Type: 
  Country: None (occurrence: None)
  Receive Date: 20060726
  Receipt Date: 20060724
  Transmission Date: 20061208
  Serious: Yes (Other)
  Sender: FDA-Public Use
  Company Number: US-JNJFOC-20060402203

PATIENT
  Sex: Female
  Weight: 74.84 kg

DRUGS (6)
  1. REGRANEX [Suspect]
     Indication: SKIN ULCER
     Route: 061
     Dates: start: 20060315, end: 20060330
  2. LEXAPRO [Concomitant]
     Indication: DEPRESSION
     Route: 065
  3. MULTI-VITAMIN [Concomitant]
     Route: 065
  4. MOTRIN [Concomitant]
     Route: 065
  5. ASPIRIN [Concomitant]
     Route: 065
  6. VIACTIN [Concomitant]
     Route: 065

REACTIONS (4)
  - FEELING HOT [None]
  - OEDEMA PERIPHERAL [None]
  - ULCER HAEMORRHAGE [None]
  - VASCULITIS [None]
